FAERS Safety Report 7506587-4 (Version None)
Quarter: 2011Q2

REPORT INFORMATION
  Report Type: 
  Country: None (occurrence: None)
  Receive Date: 20110411
  Receipt Date: 20110103
  Transmission Date: 20111010
  Serious: Yes (Other)
  Sender: FDA-Public Use
  Company Number: 024802

PATIENT
  Age: 39 Year
  Sex: Male
  Weight: 113.4 kg

DRUGS (11)
  1. PHENYTOIN [Suspect]
     Indication: CONVULSION
  2. FOLIC ACID [Concomitant]
  3. TOPAMAX [Suspect]
     Indication: CONVULSION
     Dosage: 150 MG BID, 100 MG BID, DOSE REDUCED
     Dates: start: 20100101
  4. TOPAMAX [Suspect]
     Indication: CONVULSION
     Dosage: 150 MG BID, 100 MG BID, DOSE REDUCED
     Dates: start: 20100101, end: 20100601
  5. METHOTREXATE [Concomitant]
  6. KEPPRA [Suspect]
     Indication: CONVULSION
     Dosage: 750 MG BID, EVERY NIGHT AT BED TIME
     Dates: start: 20100606, end: 20100616
  7. PHENYTOIN SODIUM CAP [Suspect]
     Indication: CONVULSION
     Dosage: SEE IMAGE
     Dates: start: 20100801
  8. PHENYTOIN SODIUM CAP [Suspect]
     Indication: CONVULSION
     Dosage: SEE IMAGE
     Dates: start: 20100801, end: 20100801
  9. PHENYTOIN SODIUM CAP [Suspect]
     Indication: CONVULSION
     Dosage: SEE IMAGE
     Dates: start: 20090101, end: 20100101
  10. PHENYTOIN SODIUM CAP [Suspect]
     Indication: CONVULSION
     Dosage: SEE IMAGE
     Dates: start: 20100601, end: 20100801
  11. PRAVASTATIN [Concomitant]

REACTIONS (3)
  - THERMAL BURN [None]
  - DEPRESSION [None]
  - SUICIDAL IDEATION [None]
